FAERS Safety Report 22171027 (Version 1)
Quarter: 2023Q2

REPORT INFORMATION
  Report Type: Spontaneous
  Country: US (occurrence: None)
  Receive Date: 20230403
  Receipt Date: 20230403
  Transmission Date: 20230721
  Serious: Yes (Other)
  Sender: FDA-Public Use
  Company Number: None

PATIENT
  Age: 75 Year
  Sex: Male

DRUGS (1)
  1. COSOPT [Suspect]
     Active Substance: DORZOLAMIDE HYDROCHLORIDE\TIMOLOL MALEATE
     Indication: Open angle glaucoma
     Dosage: FREQUENCY : TWICE A DAY;?
     Route: 031
     Dates: start: 20190603, end: 20190604

REACTIONS (4)
  - Conjunctival hyperaemia [None]
  - Conjunctival irritation [None]
  - Conjunctival oedema [None]
  - Eye pruritus [None]

NARRATIVE: CASE EVENT DATE: 20190603
